FAERS Safety Report 9827306 (Version 1)
Quarter: 2014Q1

REPORT INFORMATION
  Report Type: Report from Study
  Country: GB (occurrence: GB)
  Receive Date: 20140117
  Receipt Date: 20140117
  Transmission Date: 20141002
  Serious: Yes (Other)
  Sender: FDA-Public Use
  Company Number: GB-VERTEX PHARMACEUTICALS INC-2014-000230

PATIENT
  Age: 5 Decade
  Sex: Female

DRUGS (1)
  1. TELAPREVIR [Suspect]
     Indication: HEPATITIS C

REACTIONS (1)
  - Rash generalised [Unknown]
